FAERS Safety Report 15370922 (Version 1)
Quarter: 2018Q3

REPORT INFORMATION
  Report Type: Spontaneous
  Country: DK (occurrence: DK)
  Receive Date: 20180911
  Receipt Date: 20180911
  Transmission Date: 20181010
  Serious: Yes (Other)
  Sender: FDA-Public Use
  Company Number: DK-MYLANLABS-2017M1079605

PATIENT
  Age: 61 Year
  Sex: Female

DRUGS (1)
  1. ZOLEDRONIC ACID [Suspect]
     Active Substance: ZOLEDRONIC ACID
     Indication: RENAL CANCER
     Dosage: UNK,HIGH?DOSE

REACTIONS (4)
  - Product use in unapproved indication [Unknown]
  - Osteonecrosis of jaw [Not Recovered/Not Resolved]
  - Disease recurrence [Unknown]
  - Exposed bone in jaw [Unknown]
